FAERS Safety Report 11724125 (Version 2)
Quarter: 2016Q1

REPORT INFORMATION
  Report Type: Report from Study
  Country: JP (occurrence: JP)
  Receive Date: 20151111
  Receipt Date: 20160323
  Transmission Date: 20160525
  Serious: Yes (Other)
  Sender: FDA-Public Use
  Company Number: JP-OTSUKA-2015_013620AA

PATIENT
  Age: 44 Year
  Sex: Female
  Weight: 61 kg

DRUGS (14)
  1. TOLVAPTAN [Suspect]
     Active Substance: TOLVAPTAN
     Dosage: 15 MG, QD, IN THE MORNING
     Route: 048
     Dates: start: 20150128, end: 20150204
  2. TOLVAPTAN [Suspect]
     Active Substance: TOLVAPTAN
     Dosage: 15 MG, IN THE MORNING
     Route: 048
     Dates: start: 20150402, end: 20150404
  3. AMLODIN [Concomitant]
     Active Substance: AMLODIPINE BESYLATE
     Indication: PRODUCT USED FOR UNKNOWN INDICATION
     Dosage: 10 MG, DAILY DOSE
     Route: 048
     Dates: end: 20150219
  4. TOLVAPTAN [Suspect]
     Active Substance: TOLVAPTAN
     Dosage: 7.5 MG, BID, IN THE MORNING AND THE EVENING
     Route: 048
     Dates: start: 20150405, end: 20150409
  5. TOLVAPTAN [Suspect]
     Active Substance: TOLVAPTAN
     Dosage: 7.5 MG, BID, IN THE MORNING AND THE EVENING
     Route: 048
     Dates: start: 20150910
  6. FLUITRAN [Concomitant]
     Active Substance: TRICHLORMETHIAZIDE
     Indication: PRODUCT USED FOR UNKNOWN INDICATION
     Dosage: 2 MG, DAILY DOSE
     Route: 048
     Dates: end: 20150126
  7. TOLVAPTAN [Suspect]
     Active Substance: TOLVAPTAN
     Dosage: 7.5 MG, IN THE EVENING
     Route: 048
     Dates: start: 20150402, end: 20150404
  8. TOLVAPTAN [Suspect]
     Active Substance: TOLVAPTAN
     Dosage: 7.5 MG, QD, IN THE MORNING
     Route: 048
     Dates: start: 20150501, end: 20150909
  9. KREMEZIN [Concomitant]
     Active Substance: ACTIVATED CHARCOAL
     Indication: CONGENITAL CYSTIC KIDNEY DISEASE
     Dosage: 6 G, DAILY DOSE
     Route: 048
     Dates: start: 20150115, end: 20150618
  10. TOLVAPTAN [Suspect]
     Active Substance: TOLVAPTAN
     Indication: CONGENITAL CYSTIC KIDNEY DISEASE
     Dosage: 7.5 MG, BID, IN THE MORNING AND THE EVENING
     Route: 048
     Dates: start: 20150127, end: 20150127
  11. VALSARTAN. [Concomitant]
     Active Substance: VALSARTAN
     Indication: PRODUCT USED FOR UNKNOWN INDICATION
     Dosage: 160 MG, DAILY DOSE
     Route: 048
     Dates: end: 20150219
  12. AZILVA [Concomitant]
     Active Substance: AZILSARTAN KAMEDOXOMIL
     Indication: PRODUCT USED FOR UNKNOWN INDICATION
     Dosage: 40 MG, DAILY DOSE
     Route: 048
     Dates: start: 20150219, end: 20150618
  13. TOLVAPTAN [Suspect]
     Active Substance: TOLVAPTAN
     Dosage: 7.5 MG, QD, IN THE MORNING
     Route: 048
     Dates: start: 20150410, end: 20150414
  14. TOLVAPTAN [Suspect]
     Active Substance: TOLVAPTAN
     Dosage: 7.5 MG, BID, IN THE MORNING AND THE EVENING
     Route: 048
     Dates: start: 20150205, end: 20150401

REACTIONS (5)
  - Insomnia [Unknown]
  - Pain [Recovered/Resolved]
  - Pollakiuria [Unknown]
  - Renal cyst haemorrhage [Recovered/Resolved]
  - Hypertension [Recovered/Resolved]

NARRATIVE: CASE EVENT DATE: 20150408
